FAERS Safety Report 8288585-9 (Version None)
Quarter: 2012Q2

REPORT INFORMATION
  Report Type: 
  Country: None (occurrence: None)
  Receive Date: 20120416
  Receipt Date: 20120413
  Transmission Date: 20120825
  Serious: Yes (Hospitalization)
  Sender: FDA-Public Use
  Company Number: JP-MERCK-1203USA03081

PATIENT
  Age: 84 Year
  Sex: Female

DRUGS (2)
  1. CLINORIL [Suspect]
     Route: 048
  2. CLINORIL [Suspect]
     Indication: CHONDROCALCINOSIS PYROPHOSPHATE
     Route: 048

REACTIONS (3)
  - ENTERITIS [None]
  - PORTAL VENOUS GAS [None]
  - RENAL IMPAIRMENT [None]
